FAERS Safety Report 10743030 (Version 1)
Quarter: 2015Q1

REPORT INFORMATION
  Report Type: Report from Study
  Country: ES (occurrence: ES)
  Receive Date: 20150127
  Receipt Date: 20150127
  Transmission Date: 20150721
  Serious: Yes (Hospitalization)
  Sender: FDA-Public Use
  Company Number: ES-B.I. PHARMACEUTICALS,INC./RIDGEFIELD-2014-BI-61642ES

PATIENT
  Age: 66 Year
  Sex: Male
  Weight: 61 kg

DRUGS (3)
  1. BIBF 1120 [Suspect]
     Active Substance: NINTEDANIB
     Indication: NON-SMALL CELL LUNG CANCER
     Dosage: 400 MG
     Route: 048
     Dates: start: 20141215, end: 20141224
  2. PHENTANIL [Concomitant]
     Indication: PAIN
     Dosage: 75 MCG
     Route: 050
  3. IBUPROFENE [Concomitant]
     Active Substance: IBUPROFEN
     Indication: PAIN
     Dosage: 600 MG
     Route: 048

REACTIONS (4)
  - Febrile neutropenia [Recovered/Resolved]
  - Back pain [Recovered/Resolved]
  - Dyspnoea [Recovered/Resolved]
  - Anxiety [Recovered/Resolved]

NARRATIVE: CASE EVENT DATE: 20141218
